FAERS Safety Report 10031324 (Version 1)
Quarter: 2014Q1

REPORT INFORMATION
  Report Type: Spontaneous
  Country: US (occurrence: None)
  Receive Date: 20140306
  Receipt Date: 20140306
  Transmission Date: 20141002
  Serious: Yes (Other)
  Sender: FDA-Public Use
  Company Number: 163-21880-12083558

PATIENT
  Age: 63 Year
  Sex: Male

DRUGS (3)
  1. REVLIMID [Suspect]
     Indication: PLASMA CELL MYELOMA
     Dosage: 10 MG, 1 IN 1 D, PO
     Route: 048
     Dates: start: 20120801, end: 20120821
  2. NORVASC [Concomitant]
  3. ASPIRIN [Concomitant]

REACTIONS (3)
  - Renal failure chronic [None]
  - Condition aggravated [None]
  - Blood creatinine increased [None]
